FAERS Safety Report 23228294 (Version 2)
Quarter: 2023Q4

REPORT INFORMATION
  Report Type: Spontaneous
  Country: BR (occurrence: BR)
  Receive Date: 20231125
  Receipt Date: 20231207
  Transmission Date: 20240109
  Serious: Yes (Hospitalization)
  Sender: FDA-Public Use
  Company Number: BR-CADILA HEALTHCARE LIMITED-BR-ZYDUS-100281

PATIENT

DRUGS (5)
  1. PAROXETINE [Suspect]
     Active Substance: PAROXETINE
     Indication: Depression
     Dosage: 20 MILLIGRAM, QD
     Route: 048
     Dates: start: 20231101, end: 20231115
  2. PAROXETINE [Suspect]
     Active Substance: PAROXETINE
     Indication: Anxiety
  3. PAROXETINE [Suspect]
     Active Substance: PAROXETINE
     Indication: Fibromyalgia
  4. VITAMIN D NOS [Concomitant]
     Active Substance: VITAMIN D NOS
     Indication: Product used for unknown indication
     Dosage: UNK
     Route: 065
  5. CALCIUM [Concomitant]
     Active Substance: CALCIUM
     Indication: Product used for unknown indication
     Dosage: UNK
     Route: 065

REACTIONS (4)
  - Fall [Recovered/Resolved]
  - Muscular weakness [Recovered/Resolved]
  - Headache [Recovered/Resolved]
  - Lethargy [Recovered/Resolved]

NARRATIVE: CASE EVENT DATE: 20231101
